FAERS Safety Report 13550960 (Version 1)
Quarter: 2017Q2

REPORT INFORMATION
  Report Type: Spontaneous
  Country: US (occurrence: US)
  Receive Date: 20170516
  Receipt Date: 20170516
  Transmission Date: 20170830
  Serious: No
  Sender: FDA-Public Use
  Company Number: US-PFIZER INC-2017213518

PATIENT
  Sex: Female

DRUGS (1)
  1. GABAPENTIN. [Suspect]
     Active Substance: GABAPENTIN
     Indication: DIABETIC NEUROPATHY
     Dosage: UNK UNK, 3X/DAY

REACTIONS (4)
  - Memory impairment [Unknown]
  - Somnolence [Unknown]
  - Drug effect delayed [Unknown]
  - Product use in unapproved indication [Unknown]
